FAERS Safety Report 12370718 (Version 1)
Quarter: 2016Q2

REPORT INFORMATION
  Report Type: Spontaneous
  Country: VN (occurrence: VN)
  Receive Date: 20160516
  Receipt Date: 20160516
  Transmission Date: 20160815
  Serious: Yes (Other)
  Sender: FDA-Public Use
  Company Number: VN-ROCHE-1756536

PATIENT
  Sex: Male

DRUGS (7)
  1. MABTHERA [Suspect]
     Active Substance: RITUXIMAB
     Indication: B-CELL LYMPHOMA
     Dosage: IN R-CHOP THERAPY, 8 CYCLES, WEEKLY FOR 4 DOSES.
     Route: 042
     Dates: start: 201507, end: 201512
  2. VINCRISTINE [Suspect]
     Active Substance: VINCRISTINE
     Indication: B-CELL LYMPHOMA
     Dosage: IN R-CHOP THERAPY, 8 CYCLES
     Route: 065
     Dates: start: 201507, end: 201512
  3. PREDNISOLONE. [Suspect]
     Active Substance: PREDNISOLONE
     Indication: B-CELL LYMPHOMA
     Dosage: IN R-CHOP THERAPY, 8 CYCLES
     Route: 065
     Dates: start: 201507, end: 201512
  4. DOXORUBICIN HYDROCHLORIDE. [Suspect]
     Active Substance: DOXORUBICIN HYDROCHLORIDE
     Indication: B-CELL LYMPHOMA
     Dosage: IN R-CHOP THERAPY, 8 CYCLES
     Route: 065
     Dates: start: 201507, end: 201512
  5. MABTHERA [Suspect]
     Active Substance: RITUXIMAB
     Dosage: MAINTENANCE THERAPY
     Route: 042
  6. GEMCITABINE [Concomitant]
     Active Substance: GEMCITABINE\GEMCITABINE HYDROCHLORIDE
  7. CYCLOPHOSPHAMIDE. [Suspect]
     Active Substance: CYCLOPHOSPHAMIDE
     Indication: B-CELL LYMPHOMA
     Dosage: IN R-CHOP THERAPY, 8 CYCLES
     Route: 065
     Dates: start: 201507, end: 201512

REACTIONS (1)
  - Non-Hodgkin^s lymphoma recurrent [Unknown]
